FAERS Safety Report 25816225 (Version 1)
Quarter: 2025Q3

REPORT INFORMATION
  Report Type: Spontaneous
  Country: US (occurrence: US)
  Receive Date: 20250918
  Receipt Date: 20250918
  Transmission Date: 20251021
  Serious: No
  Sender: ABBVIE
  Company Number: US-ABBVIE-6459801

PATIENT
  Age: 79 Year

DRUGS (1)
  1. RISANKIZUMAB [Suspect]
     Active Substance: RISANKIZUMAB
     Indication: Colitis ulcerative
     Route: 058

REACTIONS (3)
  - Product storage error [Unknown]
  - Emotional distress [Unknown]
  - Tearfulness [Unknown]

NARRATIVE: CASE EVENT DATE: 20250910
